FAERS Safety Report 12473839 (Version 1)
Quarter: 2016Q2

REPORT INFORMATION
  Report Type: Spontaneous
  Country: US (occurrence: US)
  Receive Date: 20160616
  Receipt Date: 20160616
  Transmission Date: 20160815
  Serious: No
  Sender: FDA-Public Use
  Company Number: US-ELI_LILLY_AND_COMPANY-US201606003826

PATIENT
  Sex: Male

DRUGS (4)
  1. HUMULIN R U-500 [Suspect]
     Active Substance: INSULIN HUMAN
     Dosage: 150 U, AT DINNER
     Route: 065
     Dates: start: 20160407
  2. HUMULIN R U-500 [Suspect]
     Active Substance: INSULIN HUMAN
     Indication: TYPE 2 DIABETES MELLITUS
     Dosage: 200 U, AT BREAKFAST
     Route: 065
     Dates: start: 20160407
  3. HUMULIN R U-500 [Suspect]
     Active Substance: INSULIN HUMAN
     Dosage: 150 U, AT LUNCH
     Route: 065
     Dates: start: 20160407
  4. HUMULIN R U-500 [Suspect]
     Active Substance: INSULIN HUMAN
     Dosage: 50 U, AT BEDTIME
     Route: 065
     Dates: start: 20160407

REACTIONS (2)
  - Inappropriate schedule of drug administration [Unknown]
  - Hypoglycaemia [Unknown]
